FAERS Safety Report 7087883-4 (Version None)
Quarter: 2010Q4

REPORT INFORMATION
  Report Type: 
  Country: None (occurrence: None)
  Receive Date: 20101108
  Receipt Date: 20101025
  Transmission Date: 20110411
  Serious: Yes (Other)
  Sender: FDA-Public Use
  Company Number: US-US-EMD SERONO, INC.-7020929

PATIENT
  Sex: Female

DRUGS (4)
  1. REBIF [Suspect]
     Indication: MULTIPLE SCLEROSIS
     Route: 058
     Dates: start: 20100715, end: 20100101
  2. REBIF [Suspect]
     Route: 058
     Dates: start: 20100101, end: 20100101
  3. REBIF [Suspect]
     Route: 058
     Dates: start: 20100101
  4. XANAX [Concomitant]
     Indication: INSOMNIA

REACTIONS (4)
  - EYE INFECTION STAPHYLOCOCCAL [None]
  - INFLUENZA LIKE ILLNESS [None]
  - NECK PAIN [None]
  - STAPHYLOCOCCAL INFECTION [None]
